FAERS Safety Report 21287133 (Version 1)
Quarter: 2022Q3

REPORT INFORMATION
  Report Type: Spontaneous
  Country: US (occurrence: None)
  Receive Date: 20220902
  Receipt Date: 20220902
  Transmission Date: 20221026
  Serious: No
  Sender: FDA-Public Use
  Company Number: None

PATIENT
  Sex: Female

DRUGS (2)
  1. OTEZLA [Suspect]
     Active Substance: APREMILAST
     Indication: Psoriatic arthropathy
     Dosage: FREQUENCY : TWICE A DAY;?
     Route: 048
     Dates: start: 20220617, end: 20220901
  2. OTEZLA [Suspect]
     Active Substance: APREMILAST
     Indication: Polyarthritis

REACTIONS (2)
  - Drug ineffective [None]
  - Therapy cessation [None]
